FAERS Safety Report 15603606 (Version 2)
Quarter: 2019Q1

REPORT INFORMATION
  Report Type: Report from Study
  Country: PL (occurrence: PL)
  Receive Date: 20181109
  Receipt Date: 20190204
  Transmission Date: 20190417
  Serious: Yes (Other)
  Sender: FDA-Public Use
  Company Number: PL-CHIESI USA, INC.-PL-2018CHI000486

PATIENT
  Age: 0 Day
  Sex: Female
  Weight: 1.3 kg

DRUGS (2)
  1. CUROSURF [Suspect]
     Active Substance: PORACTANT ALFA
     Indication: NEONATAL RESPIRATORY DISTRESS SYNDROME
     Dosage: 240 MG, SINGLE
     Route: 039
     Dates: start: 20181015, end: 20181015
  2. PEYONIA [Concomitant]
     Indication: INFANTILE APNOEA
     Dosage: 26 MG, UNK
     Route: 065
     Dates: start: 20181015

REACTIONS (2)
  - Product administration error [Recovered/Resolved]
  - Neonatal hypoxia [Recovered/Resolved]

NARRATIVE: CASE EVENT DATE: 20181015
